FAERS Safety Report 6407498-8 (Version None)
Quarter: 2009Q4

REPORT INFORMATION
  Report Type: 
  Country: None (occurrence: None)
  Receive Date: 20091015
  Receipt Date: 20090930
  Transmission Date: 20100525
  Serious: Yes (Hospitalization)
  Sender: FDA-Public Use
  Company Number: 2009002004

PATIENT
  Age: 71 Year
  Sex: Male

DRUGS (11)
  1. ERLOTINIB [Suspect]
     Indication: LUNG NEOPLASM MALIGNANT
     Dosage: (150 MG, Q21), ORAL
     Route: 048
  2. DOCETAXEL [Suspect]
     Dosage: INTRAVENOUS
     Route: 042
     Dates: start: 20090602
  3. LONALGAL [Concomitant]
  4. ZURCAZOL [Concomitant]
  5. REMERON [Concomitant]
  6. TILDIEM (DILTIAZEM) [Concomitant]
  7. DIOVAN HCT [Concomitant]
  8. SALOSPIR (ACETYLSALICYLIC ACID) [Concomitant]
  9. SPIRIVA [Concomitant]
  10. SERETIDE (SERETIDE) [Concomitant]
  11. LIPITOR [Concomitant]

REACTIONS (5)
  - COUGH [None]
  - DYSPNOEA [None]
  - HAEMOPTYSIS [None]
  - LEUKOPENIA [None]
  - LUNG INFECTION [None]
